FAERS Safety Report 14868403 (Version 1)
Quarter: 2018Q2

REPORT INFORMATION
  Report Type: Spontaneous
  Country: US (occurrence: US)
  Receive Date: 20180509
  Receipt Date: 20180509
  Transmission Date: 20180711
  Serious: Yes (Hospitalization, Other)
  Sender: FDA-Public Use
  Company Number: US-MACLEODS PHARMACEUTICALS US LTD-MAC2018013018

PATIENT

DRUGS (5)
  1. ARIPIPRAZOLE  10 MG [Suspect]
     Active Substance: ARIPIPRAZOLE
     Indication: MAJOR DEPRESSION
     Dosage: 10 MILLIGRAM, 12 HOUR
     Route: 048
  2. RISPERIDONE. [Suspect]
     Active Substance: RISPERIDONE
     Indication: MAJOR DEPRESSION
     Dosage: 37.5 MILLIGRAM, INJECTION
     Route: 065
  3. DULOXETINE 60 MG [Concomitant]
     Active Substance: DULOXETINE
     Indication: MAJOR DEPRESSION
     Dosage: 60 MILLIGRAM, QD, 24 HOUR
     Route: 065
  4. RISPERIDONE. [Suspect]
     Active Substance: RISPERIDONE
     Dosage: 2 MILLIGRAM,12 HOUR
     Route: 048
  5. RISPERIDONE. [Suspect]
     Active Substance: RISPERIDONE
     Dosage: 25 MILLIGRAM, INJECTION, EVERY 2 WEEKS FOR THE PAST 4 YEARS
     Route: 065

REACTIONS (4)
  - Hypotension [Recovering/Resolving]
  - Incorrect dose administered [Unknown]
  - Acute kidney injury [Recovering/Resolving]
  - Neuroleptic malignant syndrome [Recovering/Resolving]
